FAERS Safety Report 9602336 (Version 1)
Quarter: 2013Q4

REPORT INFORMATION
  Report Type: Spontaneous
  Country: US (occurrence: US)
  Receive Date: 20131007
  Receipt Date: 20131007
  Transmission Date: 20140711
  Serious: No
  Sender: FDA-Public Use
  Company Number: US-GLAXOSMITHKLINE-A1033730A

PATIENT
  Age: 35 Year
  Sex: Female

DRUGS (7)
  1. BENLYSTA [Suspect]
     Indication: SYSTEMIC LUPUS ERYTHEMATOSUS
     Route: 042
     Dates: start: 20130604
  2. PLAQUENIL [Concomitant]
  3. AMBIEN [Concomitant]
  4. XANAX [Concomitant]
  5. OXYCODONE [Concomitant]
  6. WELLBUTRIN [Concomitant]
  7. GABAPENTIN [Concomitant]

REACTIONS (6)
  - Local swelling [Not Recovered/Not Resolved]
  - Joint swelling [Unknown]
  - Pain in extremity [Unknown]
  - Urinary tract disorder [Unknown]
  - Dizziness [Unknown]
  - Menstruation delayed [Unknown]
